FAERS Safety Report 24972428 (Version 1)
Quarter: 2025Q1

REPORT INFORMATION
  Report Type: Spontaneous
  Country: US (occurrence: US)
  Receive Date: 20250215
  Receipt Date: 20250215
  Transmission Date: 20250408
  Serious: Yes (Other)
  Sender: ABBVIE
  Company Number: US-ABBVIE-6133507

PATIENT
  Sex: Male

DRUGS (5)
  1. HUMIRA [Suspect]
     Active Substance: ADALIMUMAB
     Indication: Product used for unknown indication
     Route: 058
  2. XOLAIR [Concomitant]
     Active Substance: OMALIZUMAB
     Indication: Product used for unknown indication
  3. ORENCIA [Concomitant]
     Active Substance: ABATACEPT
     Indication: Product used for unknown indication
  4. DUPIXENT [Suspect]
     Active Substance: DUPILUMAB
     Indication: Neurodermatitis
     Dosage: FORM STRENGTH 300MG/2ML
     Route: 058
  5. RINVOQ [Concomitant]
     Active Substance: UPADACITINIB
     Indication: Product used for unknown indication

REACTIONS (18)
  - Surgery [Unknown]
  - Sinus disorder [Unknown]
  - Gastrooesophageal reflux disease [Unknown]
  - Respiration abnormal [Unknown]
  - Chronic obstructive pulmonary disease [Unknown]
  - Pruritus [Unknown]
  - Scratch [Unknown]
  - Sinus congestion [Unknown]
  - Hypoacusis [Unknown]
  - Injection site urticaria [Unknown]
  - Venous injury [Unknown]
  - Genital burning sensation [Recovering/Resolving]
  - Tongue discomfort [Recovered/Resolved]
  - Injection site bruising [Unknown]
  - Drug resistance [Unknown]
  - Drug ineffective [Unknown]
  - Haemorrhage [Unknown]
  - Increased bronchial secretion [Unknown]
